FAERS Safety Report 8230691 (Version 5)
Quarter: 2013Q3

REPORT INFORMATION
  Report Type: Spontaneous
  Country: US (occurrence: US)
  Receive Date: 20111106
  Receipt Date: 20130809
  Transmission Date: 20140515
  Serious: Yes (Other)
  Sender: FDA-Public Use
  Company Number: US-AMGEN-USASP2011043434

PATIENT
  Age: 58 Year
  Sex: Female

DRUGS (1)
  1. ENBREL [Suspect]
     Indication: RHEUMATOID ARTHRITIS
     Dosage: 75 MG, QWK (50MG ONE DAY + 25MG 3 DAYS LATER = 75MG)
     Route: 065
     Dates: start: 20030401

REACTIONS (15)
  - Joint dislocation [Not Recovered/Not Resolved]
  - Wound infection [Not Recovered/Not Resolved]
  - Impaired healing [Not Recovered/Not Resolved]
  - Malabsorption [Not Recovered/Not Resolved]
  - Osteoarthritis [Not Recovered/Not Resolved]
  - Spinal column stenosis [Not Recovered/Not Resolved]
  - Laceration [Not Recovered/Not Resolved]
  - Hand deformity [Not Recovered/Not Resolved]
  - Hypersensitivity [Not Recovered/Not Resolved]
  - Arthralgia [Recovered/Resolved]
  - Arthropathy [Not Recovered/Not Resolved]
  - Wrist deformity [Not Recovered/Not Resolved]
  - X-ray abnormal [Not Recovered/Not Resolved]
  - Rhinitis [Not Recovered/Not Resolved]
  - Bronchitis [Not Recovered/Not Resolved]
